FAERS Safety Report 18534636 (Version 1)
Quarter: 2020Q4

REPORT INFORMATION
  Report Type: Spontaneous
  Country: CN (occurrence: CN)
  Receive Date: 20201123
  Receipt Date: 20201123
  Transmission Date: 20210114
  Serious: Yes (Life-Threatening, Hospitalization, Other)
  Sender: FDA-Public Use
  Company Number: CN-PFIZER INC-2020459570

PATIENT
  Age: 89 Year
  Sex: Female
  Weight: 80 kg

DRUGS (2)
  1. SODIUM CHLORIDE. [Concomitant]
     Active Substance: SODIUM CHLORIDE
     Indication: VEHICLE SOLUTION USE
     Dosage: 100 ML, 2X/DAY
     Route: 041
     Dates: start: 20201103, end: 20201103
  2. TAZOCIN [Suspect]
     Active Substance: PIPERACILLIN SODIUM\TAZOBACTAM SODIUM
     Indication: ANTI-INFECTIVE THERAPY
     Dosage: 4.5 G, 2X/DAY
     Route: 041
     Dates: start: 20201103, end: 20201103

REACTIONS (9)
  - Chest discomfort [Unknown]
  - Coma [Unknown]
  - Somnolence [Unknown]
  - Anaphylactoid reaction [Recovering/Resolving]
  - Hypoaesthesia [Unknown]
  - Hypersensitivity [Unknown]
  - Pallor [Unknown]
  - Cyanosis [Unknown]
  - Tachypnoea [Unknown]

NARRATIVE: CASE EVENT DATE: 20201103
